FAERS Safety Report 5148192-3 (Version None)
Quarter: 2006Q4

REPORT INFORMATION
  Report Type: 
  Country: None (occurrence: None)
  Receive Date: 20061110
  Receipt Date: 20060306
  Transmission Date: 20070319
  Serious: Yes (Hospitalization)
  Sender: FDA-Public Use
  Company Number: US-ELI_LILLY_AND_COMPANY-US200605005818

PATIENT
  Age: 51 Year
  Sex: Male
  Weight: 122.45 kg

DRUGS (2)
  1. ZYPREXA [Suspect]
     Indication: DEPRESSION
     Dosage: 5 MG, UNK
     Route: 048
     Dates: start: 20010308, end: 20031116
  2. SERTRALINE [Concomitant]
     Route: 048
     Dates: start: 20010301

REACTIONS (4)
  - BLOOD TRIGLYCERIDES INCREASED [None]
  - CARDIAC OPERATION [None]
  - DIABETES MELLITUS [None]
  - HYPERTENSION [None]
